FAERS Safety Report 5298838-4 (Version None)
Quarter: 2007Q2

REPORT INFORMATION
  Report Type: 
  Country: None (occurrence: None)
  Receive Date: 20070417
  Receipt Date: 20051117
  Transmission Date: 20071010
  Serious: No
  Sender: FDA-Public Use
  Company Number: US-AMGEN-US158336

PATIENT
  Sex: Male

DRUGS (6)
  1. SENSIPAR [Suspect]
     Indication: HYPERPARATHYROIDISM SECONDARY
     Route: 048
  2. MINOXIDIL [Concomitant]
  3. RENAGEL [Concomitant]
  4. ZESTRIL [Concomitant]
  5. FOLIC ACID [Concomitant]
  6. IRON [Concomitant]
     Route: 048

REACTIONS (1)
  - DIARRHOEA [None]
